FAERS Safety Report 9293690 (Version 1)
Quarter: 2013Q2

REPORT INFORMATION
  Report Type: Spontaneous
  Country: US (occurrence: US)
  Receive Date: 20130516
  Receipt Date: 20130516
  Transmission Date: 20140414
  Serious: Yes (Other)
  Sender: FDA-Public Use
  Company Number: US-FRI-1000045103

PATIENT
  Sex: Male

DRUGS (1)
  1. TEFLARO [Suspect]
     Indication: WOUND

REACTIONS (2)
  - Platelet count decreased [Unknown]
  - Off label use [Recovered/Resolved]
